FAERS Safety Report 10021361 (Version 1)
Quarter: 2014Q1

REPORT INFORMATION
  Report Type: Spontaneous
  Country: US (occurrence: US)
  Receive Date: 20140319
  Receipt Date: 20140319
  Transmission Date: 20141002
  Serious: No
  Sender: FDA-Public Use
  Company Number: US-009507513-1403USA005654

PATIENT
  Sex: Male

DRUGS (3)
  1. TIMOPTIC [Suspect]
     Dosage: 1 DROP IN EACH EYE, ONCE DAILY
     Route: 047
  2. TIMOPTIC XE [Suspect]
     Dosage: UNK
     Route: 047
  3. XALATAN [Concomitant]

REACTIONS (1)
  - Eye irritation [Recovered/Resolved]
